FAERS Safety Report 6496688-4 (Version None)
Quarter: 2009Q4

REPORT INFORMATION
  Report Type: 
  Country: None (occurrence: None)
  Receive Date: 20091210
  Receipt Date: 20091125
  Transmission Date: 20100525
  Serious: Yes (Hospitalization, Other)
  Sender: FDA-Public Use
  Company Number: AUR-APL-2009-01407

PATIENT
  Age: 53 Year
  Sex: Male

DRUGS (2)
  1. CEFPROZIL [Suspect]
     Indication: ARTHROPOD BITE
  2. FAMCICLOVIR [Concomitant]

REACTIONS (6)
  - ACUTE GENERALISED EXANTHEMATOUS PUSTULOSIS [None]
  - ACUTE RESPIRATORY FAILURE [None]
  - EJECTION FRACTION ABNORMAL [None]
  - HYPOTENSION [None]
  - PULMONARY OEDEMA [None]
  - SYSTEMIC INFLAMMATORY RESPONSE SYNDROME [None]
